FAERS Safety Report 7274044-9 (Version None)
Quarter: 2011Q1

REPORT INFORMATION
  Report Type: 
  Country: None (occurrence: None)
  Receive Date: 20110203
  Receipt Date: 20110126
  Transmission Date: 20110831
  Serious: Yes (Hospitalization)
  Sender: FDA-Public Use
  Company Number: JP-BRISTOL-MYERS SQUIBB COMPANY-15511892

PATIENT
  Age: 63 Year
  Sex: Male
  Weight: 85 kg

DRUGS (8)
  1. ALLOPURINOL [Concomitant]
     Indication: HYPERURICAEMIA
  2. CYCLOPHOSPHAMIDE [Suspect]
     Indication: B-CELL LYMPHOMA
     Dosage: DAY 1,1500MG/BODY
     Route: 042
     Dates: start: 20101116
  3. RITUXIMAB [Suspect]
     Indication: B-CELL LYMPHOMA
     Dosage: DAY 1,750 MG/BODY
     Route: 042
     Dates: start: 20101116
  4. VINCRISTINE SULFATE [Suspect]
     Indication: B-CELL LYMPHOMA
     Route: 042
     Dates: start: 20101116
  5. PREDNISONE [Suspect]
     Indication: B-CELL LYMPHOMA
     Dosage: 80 MG/M2 ON DAY 1 THROUGH DAY5
     Route: 048
     Dates: start: 20101116, end: 20101120
  6. AMLODIPINE BESYLATE [Concomitant]
     Indication: HYPERTENSION
  7. METOCLOPRAMIDE [Concomitant]
     Indication: NAUSEA
  8. SENNOSIDE A+B [Concomitant]
     Indication: CONSTIPATION

REACTIONS (2)
  - THROMBOCYTOPENIA [None]
  - HEPATITIS ACUTE [None]
